FAERS Safety Report 20035703 (Version 1)
Quarter: 2021Q4

REPORT INFORMATION
  Report Type: Spontaneous
  Country: US (occurrence: US)
  Receive Date: 20211104
  Receipt Date: 20211104
  Transmission Date: 20220303
  Serious: No
  Sender: FDA-Public Use
  Company Number: US-BEH-2021137909

PATIENT
  Sex: Male

DRUGS (2)
  1. HIZENTRA [Suspect]
     Active Substance: HUMAN IMMUNOGLOBULIN G
     Indication: Chronic sinusitis
     Dosage: 20 GRAM, QOW
     Route: 058
     Dates: start: 201611
  2. HIZENTRA [Suspect]
     Active Substance: HUMAN IMMUNOGLOBULIN G
     Dosage: UNK
     Route: 065

REACTIONS (8)
  - Headache [Unknown]
  - Recalled product administered [Unknown]
  - Hypertension [Unknown]
  - Recalled product administered [Unknown]
  - Injection site erythema [Not Recovered/Not Resolved]
  - Recalled product administered [Not Recovered/Not Resolved]
  - No adverse event [Unknown]
  - Off label use [Unknown]
